FAERS Safety Report 25152677 (Version 1)
Quarter: 2025Q2

REPORT INFORMATION
  Report Type: Spontaneous
  Country: JP (occurrence: JP)
  Receive Date: 20250402
  Receipt Date: 20250402
  Transmission Date: 20250717
  Serious: Yes (Death)
  Sender: JOHNSON AND JOHNSON
  Company Number: JP-JNJFOC-20250196225

PATIENT
  Age: 8 Decade
  Sex: Male
  Weight: 52.0 kg

DRUGS (5)
  1. TREMFYA [Suspect]
     Active Substance: GUSELKUMAB
     Indication: Psoriasis
     Dosage: EVERY 4 TO 8 WEEKS
     Route: 058
     Dates: start: 20241021, end: 20250121
  2. TREMFYA [Suspect]
     Active Substance: GUSELKUMAB
  3. TREMFYA [Suspect]
     Active Substance: GUSELKUMAB
  4. OXAROL [Suspect]
     Active Substance: MAXACALCITOL
     Indication: Psoriasis
     Route: 065
     Dates: end: 20250121
  5. OXAROL [Suspect]
     Active Substance: MAXACALCITOL
     Route: 065

REACTIONS (3)
  - Pemphigoid [Fatal]
  - Hypercalcaemia [Unknown]
  - Decreased appetite [Unknown]

NARRATIVE: CASE EVENT DATE: 20250121
